FAERS Safety Report 7619760-1 (Version None)
Quarter: 2011Q3

REPORT INFORMATION
  Report Type: 
  Country: None (occurrence: None)
  Receive Date: 20110719
  Receipt Date: 20110715
  Transmission Date: 20111222
  Serious: No
  Sender: FDA-Public Use
  Company Number: US-B.I. PHARMACEUTICALS,INC./RIDGEFIELD-2011-BP-14693BP

PATIENT
  Age: 78 Year
  Sex: Female
  Weight: 57.61 kg

DRUGS (6)
  1. PRADAXA [Suspect]
     Dosage: 300 MG
     Dates: start: 20101123, end: 20110118
  2. CALCIUM+ D [Concomitant]
  3. LISINOPRIL [Concomitant]
     Dosage: 10 NR
     Dates: start: 20080901
  4. CENTRUM SILVER [Concomitant]
  5. PRAVASTATIN [Concomitant]
     Dosage: 20 NR
     Dates: start: 20080901
  6. ASPIRIN [Concomitant]
     Dosage: 81 NR
     Dates: start: 20110208

REACTIONS (4)
  - DIZZINESS [None]
  - RASH [None]
  - RASH MACULO-PAPULAR [None]
  - URTICARIA [None]
